FAERS Safety Report 9565621 (Version 1)
Quarter: 2013Q3

REPORT INFORMATION
  Report Type: Spontaneous
  Country: US (occurrence: US)
  Receive Date: 20130930
  Receipt Date: 20130930
  Transmission Date: 20140515
  Serious: No
  Sender: FDA-Public Use
  Company Number: US-PFIZER INC-2013277130

PATIENT
  Age: 43 Year
  Sex: Female
  Weight: 63.04 kg

DRUGS (2)
  1. PREMARIN [Suspect]
     Indication: HORMONE REPLACEMENT THERAPY
     Dosage: 0.625 MG, 1X/DAY
     Route: 048
     Dates: start: 2006, end: 2007
  2. LEVOXYL [Concomitant]
     Indication: THYROID DISORDER
     Dosage: 150 UG, 1X/DAY

REACTIONS (3)
  - Muscle spasms [Recovered/Resolved]
  - Pain in extremity [Recovered/Resolved]
  - Arthropathy [Recovered/Resolved]
